FAERS Safety Report 13646232 (Version 1)
Quarter: 2017Q2

REPORT INFORMATION
  Report Type: Spontaneous
  Country: CN (occurrence: CN)
  Receive Date: 20170613
  Receipt Date: 20170613
  Transmission Date: 20170830
  Serious: Yes (Other)
  Sender: FDA-Public Use
  Company Number: CN-SUN PHARMACEUTICAL INDUSTRIES LTD-2017RR-141210

PATIENT
  Age: 41 Year

DRUGS (9)
  1. ETHAMBUTOL [Concomitant]
     Active Substance: ETHAMBUTOL HYDROCHLORIDE
     Indication: TUBERCULOSIS
     Dosage: 750 MG, QD
     Route: 048
     Dates: start: 2014
  2. WARFARIN [Interacting]
     Active Substance: WARFARIN
     Dosage: 6 MG, QD
     Route: 048
     Dates: start: 201510
  3. WARFARIN [Interacting]
     Active Substance: WARFARIN
     Dosage: 4.5 MG, QD
     Route: 048
  4. ISONIAZID. [Suspect]
     Active Substance: ISONIAZID
     Indication: TUBERCULOSIS
     Dosage: 300 MG, QD
     Route: 048
     Dates: start: 2014
  5. RIVAROXABAN [Interacting]
     Active Substance: RIVAROXABAN
     Dosage: 10 MG, QD
     Dates: start: 20160112
  6. RIFAMPICIN [Interacting]
     Active Substance: RIFAMPIN
     Indication: TUBERCULOSIS
     Dosage: 450 MG, QD
     Route: 048
     Dates: start: 2014
  7. WARFARIN [Interacting]
     Active Substance: WARFARIN
     Indication: DEEP VEIN THROMBOSIS
     Dosage: 3 MG, QD
     Route: 048
     Dates: start: 20150807
  8. RIVAROXABAN [Interacting]
     Active Substance: RIVAROXABAN
     Indication: DEEP VEIN THROMBOSIS
     Dosage: 10 MG, QD
     Route: 048
  9. WARFARIN [Interacting]
     Active Substance: WARFARIN
     Dosage: 12 MG, QD
     Route: 048
     Dates: start: 20160112

REACTIONS (2)
  - Drug interaction [Unknown]
  - Drug ineffective [Unknown]
